FAERS Safety Report 6149185-X (Version None)
Quarter: 2009Q2

REPORT INFORMATION
  Report Type: 
  Country: None (occurrence: None)
  Receive Date: 20090407
  Receipt Date: 20090323
  Transmission Date: 20091009
  Serious: Yes (Other)
  Sender: FDA-Public Use
  Company Number: 430058J08USA

PATIENT
  Age: 46 Year
  Sex: Female
  Weight: 75 kg

DRUGS (4)
  1. NOVANTRONE [Suspect]
     Indication: MULTIPLE SCLEROSIS
     Dates: start: 20030101, end: 20040101
  2. AMITRIPTYLINE HCL [Concomitant]
  3. TIZANIDINE HCL [Concomitant]
  4. BACLOFEN [Concomitant]

REACTIONS (2)
  - DYSPNOEA [None]
  - EJECTION FRACTION DECREASED [None]
